FAERS Safety Report 6129130-3 (Version None)
Quarter: 2009Q1

REPORT INFORMATION
  Report Type: 
  Country: None (occurrence: None)
  Receive Date: 20090324
  Receipt Date: 20090318
  Transmission Date: 20090719
  Serious: Yes (Hospitalization)
  Sender: FDA-Public Use
  Company Number: FR-JNJFOC-20090304576

PATIENT
  Sex: Male

DRUGS (8)
  1. REOPRO [Suspect]
     Indication: ANGIOPLASTY
     Route: 022
  2. LOVENOX [Suspect]
     Indication: ANGIOPLASTY
  3. LODOZ [Concomitant]
     Indication: HYPERTENSION
  4. STRUCTUM [Concomitant]
  5. LEXOMIL [Concomitant]
  6. PLAVIX [Concomitant]
     Indication: ANGIOPLASTY
  7. ASPIRIN [Concomitant]
     Indication: ANGIOPLASTY
  8. RISORDAN [Concomitant]
     Indication: ANGIOPLASTY
     Route: 022

REACTIONS (2)
  - INCORRECT ROUTE OF DRUG ADMINISTRATION [None]
  - THROMBOCYTOPENIA [None]
